FAERS Safety Report 10048942 (Version 1)
Quarter: 2014Q1

REPORT INFORMATION
  Report Type: Spontaneous
  Country: TR (occurrence: TR)
  Receive Date: 20140331
  Receipt Date: 20140331
  Transmission Date: 20141002
  Serious: Yes (Life-Threatening)
  Sender: FDA-Public Use
  Company Number: TR-ASTRAZENECA-2014SE19749

PATIENT
  Age: 74 Year
  Sex: 0

DRUGS (20)
  1. PROPOFOL [Suspect]
     Indication: MAINTENANCE OF ANAESTHESIA
     Dosage: 2 MG/KG/HR FOR VENTILATION
     Route: 042
  2. PROPOFOL [Suspect]
     Indication: MECHANICAL VENTILATION
     Dosage: 2 MG/KG/HR FOR VENTILATION
     Route: 042
  3. PROPOFOL [Suspect]
     Indication: INDUCTION OF ANAESTHESIA
     Dosage: INCREASED TO 2.5 MG/KG/HR FOR VENTILATION
     Route: 042
  4. PROPOFOL [Suspect]
     Indication: MAINTENANCE OF ANAESTHESIA
     Dosage: INCREASED TO 2.5 MG/KG/HR FOR VENTILATION
     Route: 042
  5. PROPOFOL [Suspect]
     Indication: MECHANICAL VENTILATION
     Dosage: INCREASED TO 2.5 MG/KG/HR FOR VENTILATION
     Route: 042
  6. PROPOFOL [Suspect]
     Indication: INDUCTION OF ANAESTHESIA
     Dosage: TOTAL PROPOFOL INFUSION WAS 2-2.5MG/KG/H CORRESPONDING TO A TOTAL DOSE OF 40MCG/KG/MIN
     Route: 042
  7. PROPOFOL [Suspect]
     Indication: MAINTENANCE OF ANAESTHESIA
     Dosage: TOTAL PROPOFOL INFUSION WAS 2-2.5MG/KG/H CORRESPONDING TO A TOTAL DOSE OF 40MCG/KG/MIN
     Route: 042
  8. PROPOFOL [Suspect]
     Indication: MECHANICAL VENTILATION
     Dosage: TOTAL PROPOFOL INFUSION WAS 2-2.5MG/KG/H CORRESPONDING TO A TOTAL DOSE OF 40MCG/KG/MIN
     Route: 042
  9. MIDAZOLAM [Concomitant]
     Indication: INDUCTION OF ANAESTHESIA
  10. FENTANYL [Concomitant]
     Indication: INDUCTION OF ANAESTHESIA
  11. FENTANYL [Concomitant]
     Indication: INDUCTION OF ANAESTHESIA
     Dosage: MAINTENANCE DOSE
  12. ROCURONIUM [Concomitant]
     Indication: INDUCTION OF ANAESTHESIA
  13. SEVOFLURANE [Concomitant]
     Indication: MAINTENANCE OF ANAESTHESIA
  14. PROPOFOL [Suspect]
     Indication: INDUCTION OF ANAESTHESIA
     Dosage: INDUCTION ANAESTHESIA
     Route: 042
  15. PROPOFOL [Suspect]
     Indication: MAINTENANCE OF ANAESTHESIA
     Dosage: INDUCTION ANAESTHESIA
     Route: 042
  16. PROPOFOL [Suspect]
     Indication: MECHANICAL VENTILATION
     Dosage: INDUCTION ANAESTHESIA
     Route: 042
  17. PROPOFOL [Suspect]
     Indication: INDUCTION OF ANAESTHESIA
     Dosage: INCREMENTAL DOSES FOR MAINTENANCE ANAESTHESIA
     Route: 042
  18. PROPOFOL [Suspect]
     Indication: MAINTENANCE OF ANAESTHESIA
     Dosage: INCREMENTAL DOSES FOR MAINTENANCE ANAESTHESIA
     Route: 042
  19. PROPOFOL [Suspect]
     Indication: MECHANICAL VENTILATION
     Dosage: INCREMENTAL DOSES FOR MAINTENANCE ANAESTHESIA
     Route: 042
  20. PROPOFOL [Suspect]
     Indication: INDUCTION OF ANAESTHESIA
     Dosage: 2 MG/KG/HR FOR VENTILATION
     Route: 042

REACTIONS (1)
  - Propofol infusion syndrome [Recovered/Resolved]
